FAERS Safety Report 23755670 (Version 1)
Quarter: 2024Q2

REPORT INFORMATION
  Report Type: Spontaneous
  Country: CN (occurrence: CN)
  Receive Date: 20240418
  Receipt Date: 20240418
  Transmission Date: 20240716
  Serious: Yes (Other)
  Sender: FDA-Public Use
  Company Number: CN-002147023-NVSC2024CN069381

PATIENT
  Sex: Female

DRUGS (1)
  1. TOBRADEX [Suspect]
     Active Substance: DEXAMETHASONE\TOBRAMYCIN
     Indication: Ocular discomfort
     Dosage: UNK (RIGHT EYE TWICE IN THE MORNING AND TWICE IN THE AFTERNOON, LEFT EYE THREE TIMES IN THE MORNING
     Route: 031
     Dates: start: 20231217, end: 20231217

REACTIONS (8)
  - Visual acuity reduced [Not Recovered/Not Resolved]
  - Ocular hyperaemia [Not Recovered/Not Resolved]
  - Eye swelling [Not Recovered/Not Resolved]
  - Eyelid disorder [Not Recovered/Not Resolved]
  - Eye pain [Not Recovered/Not Resolved]
  - Insomnia [Unknown]
  - Hypersensitivity [Unknown]
  - Mental disorder [Unknown]

NARRATIVE: CASE EVENT DATE: 20231217
